FAERS Safety Report 9871246 (Version 2)
Quarter: 2014Q2

REPORT INFORMATION
  Report Type: Spontaneous
  Country: US (occurrence: US)
  Receive Date: 20140205
  Receipt Date: 20140605
  Transmission Date: 20141212
  Serious: Yes (Death, Hospitalization)
  Sender: FDA-Public Use
  Company Number: US-GLAXOSMITHKLINE-A1059518A

PATIENT
  Age: 79 Year
  Sex: Male

DRUGS (2)
  1. PROMACTA [Suspect]
     Indication: PLATELET COUNT DECREASED
     Route: 065
     Dates: start: 20130725
  2. PREDNISONE [Concomitant]

REACTIONS (3)
  - Lung neoplasm malignant [Fatal]
  - Pneumonia [Fatal]
  - Dyspnoea [Unknown]
